FAERS Safety Report 20659939 (Version 13)
Quarter: 2025Q4

REPORT INFORMATION
  Report Type: Report from Study
  Country: CN (occurrence: CN)
  Receive Date: 20220331
  Receipt Date: 20251229
  Transmission Date: 20260118
  Serious: Yes (Other)
  Sender: TAKEDA
  Company Number: CN-TAKEDA-2022TUS020188

PATIENT
  Age: 59 Year
  Sex: Male
  Weight: 62.5 kg

DRUGS (7)
  1. IXAZOMIB [Suspect]
     Active Substance: IXAZOMIB
     Indication: Plasma cell myeloma
     Dosage: 3 MILLIGRAM
  2. METHYLCOBALAMIN [Concomitant]
     Active Substance: METHYLCOBALAMIN
     Indication: Neuropathy peripheral
     Dosage: 0.5 MILLIGRAM, TID
  3. PREGABALIN [Concomitant]
     Active Substance: PREGABALIN
     Indication: Neuropathy peripheral
     Dosage: 75 MILLIGRAM, TID
     Dates: start: 20220303
  4. OXYCODONE AND ACETAMINOPHEN [Concomitant]
     Active Substance: ACETAMINOPHEN\OXYCODONE HYDROCHLORIDE
     Indication: Neuropathy peripheral
     Dosage: 5 MILLIGRAM, QD
     Dates: start: 20220304
  5. INCADRONATE DISODIUM [Concomitant]
     Active Substance: INCADRONATE DISODIUM
     Indication: Fracture
     Dosage: 5 MILLIGRAM, QD
     Dates: start: 20220226, end: 20220226
  6. INCADRONATE DISODIUM [Concomitant]
     Active Substance: INCADRONATE DISODIUM
     Indication: Resorption bone increased
  7. BENDAMUSTINE HYDROCHLORIDE [Concomitant]
     Active Substance: BENDAMUSTINE HYDROCHLORIDE
     Indication: Plasma cell myeloma
     Dosage: 75 MILLIGRAM
     Dates: start: 20220228, end: 20220304

REACTIONS (11)
  - Hypokalaemia [Recovered/Resolved]
  - Hypocalcaemia [Recovered/Resolved]
  - Abdominal distension [Recovered/Resolved]
  - Lymphocyte count decreased [Recovering/Resolving]
  - White blood cell count decreased [Not Recovered/Not Resolved]
  - Decreased appetite [Recovered/Resolved]
  - Platelet count decreased [Recovered/Resolved]
  - Gastrointestinal infection [Not Recovered/Not Resolved]
  - Off label use [Recovered/Resolved]
  - Mouth ulceration [Recovered/Resolved]
  - Faecal occult blood positive [Recovered/Resolved]

NARRATIVE: CASE EVENT DATE: 20220307
